FAERS Safety Report 8369556-0 (Version None)
Quarter: 2012Q2

REPORT INFORMATION
  Report Type: 
  Country: None (occurrence: None)
  Receive Date: 20120518
  Receipt Date: 20120509
  Transmission Date: 20120825
  Serious: Yes (Hospitalization)
  Sender: FDA-Public Use
  Company Number: JP-SANOFI-AVENTIS-2012SA033794

PATIENT
  Age: 70 Year
  Sex: Male

DRUGS (4)
  1. AMARYL [Suspect]
     Route: 065
  2. ALL OTHER THERAPEUTIC PRODUCTS [Concomitant]
     Route: 055
  3. PREDNISOLONE [Concomitant]
  4. AMLODIPINE BESYLATE [Concomitant]

REACTIONS (6)
  - HYPOGLYCAEMIC ENCEPHALOPATHY [None]
  - ALTERED STATE OF CONSCIOUSNESS [None]
  - MUSCULAR WEAKNESS [None]
  - CONVULSION [None]
  - CSF GLUCOSE DECREASED [None]
  - BLOOD GLUCOSE DECREASED [None]
